FAERS Safety Report 18780349 (Version 1)
Quarter: 2021Q1

REPORT INFORMATION
  Report Type: Spontaneous
  Country: FR (occurrence: FR)
  Receive Date: 20210125
  Receipt Date: 20210125
  Transmission Date: 20210419
  Serious: Yes (Other)
  Sender: FDA-Public Use
  Company Number: FR-ASTELLAS-2021US002190

PATIENT
  Sex: Male
  Weight: 65 kg

DRUGS (1)
  1. AMPHOTERICIN B, LIPOSOME [Suspect]
     Active Substance: AMPHOTERICIN B
     Indication: VISCERAL LEISHMANIASIS
     Dosage: LAMB TOTAL DOSE: 14.6G, UNKNOWN FREQ.
     Route: 065
     Dates: start: 200501, end: 200911

REACTIONS (8)
  - Splenomegaly [Recovered/Resolved]
  - Pyrexia [Recovered/Resolved]
  - Treatment failure [Recovered/Resolved]
  - Disease recurrence [Recovered/Resolved]
  - Weight decreased [Unknown]
  - Product use in unapproved indication [Recovered/Resolved]
  - Deafness [Unknown]
  - Pancytopenia [Recovered/Resolved]

NARRATIVE: CASE EVENT DATE: 200501
